FAERS Safety Report 10155104 (Version 1)
Quarter: 2014Q2

REPORT INFORMATION
  Report Type: Spontaneous
  Country: US (occurrence: None)
  Receive Date: 20140505
  Receipt Date: 20140505
  Transmission Date: 20141212
  Serious: Yes (Other)
  Sender: FDA-Public Use
  Company Number: None

PATIENT
  Age: 53 Year
  Sex: Male

DRUGS (5)
  1. ZYTIGA [Suspect]
     Indication: PROSTATE CANCER
     Dosage: 4 TABLETS (1000 MG) QD PO
     Route: 048
     Dates: start: 20111223, end: 20140501
  2. FOLIC ACID [Concomitant]
  3. VITAMIN B1 [Concomitant]
  4. OXYCODONE [Concomitant]
  5. MORPHINE SUL [Concomitant]

REACTIONS (2)
  - No therapeutic response [None]
  - Prostatic specific antigen increased [None]
